FAERS Safety Report 6234625-8 (Version None)
Quarter: 2009Q2

REPORT INFORMATION
  Report Type: 
  Country: None (occurrence: None)
  Receive Date: 20090616
  Receipt Date: 20090616
  Transmission Date: 20091009
  Serious: Yes (Hospitalization)
  Sender: FDA-Public Use
  Company Number: None

PATIENT
  Age: 81 Year
  Sex: Female
  Weight: 52.1637 kg

DRUGS (1)
  1. CYMBALTA [Suspect]
     Indication: ANALGESIC THERAPY
     Dosage: ONE DAILY PO
     Route: 048
     Dates: start: 20090606, end: 20090606

REACTIONS (6)
  - BLOOD PRESSURE SYSTOLIC INCREASED [None]
  - HYPERHIDROSIS [None]
  - NAUSEA [None]
  - PALPITATIONS [None]
  - VENTRICULAR EXTRASYSTOLES [None]
  - VOMITING [None]
